FAERS Safety Report 23776117 (Version 2)
Quarter: 2024Q2

REPORT INFORMATION
  Report Type: Other
  Country: JP (occurrence: JP)
  Receive Date: 20240424
  Receipt Date: 20240425
  Transmission Date: 20240716
  Serious: Yes (Hospitalization)
  Sender: FDA-Public Use
  Company Number: JP-CHUGAI-2024013184

PATIENT
  Age: 70 Year
  Sex: Male

DRUGS (2)
  1. AVASTIN [Suspect]
     Active Substance: BEVACIZUMAB
     Indication: Radiation necrosis
     Route: 065
     Dates: start: 202201
  2. DEXAMETHASONE [Suspect]
     Active Substance: DEXAMETHASONE
     Indication: Brain oedema
     Dosage: UNK
     Route: 065

REACTIONS (2)
  - Fournier^s gangrene [Unknown]
  - Off label use [Unknown]

NARRATIVE: CASE EVENT DATE: 20220101
